FAERS Safety Report 16228883 (Version 2)
Quarter: 2019Q2

REPORT INFORMATION
  Report Type: Spontaneous
  Country: HU (occurrence: HU)
  Receive Date: 20190423
  Receipt Date: 20190513
  Transmission Date: 20190711
  Serious: Yes (Hospitalization)
  Sender: FDA-Public Use
  Company Number: HU-PFIZER INC-2019167663

PATIENT
  Age: 64 Year
  Sex: Female

DRUGS (3)
  1. RISPERIDONE. [Suspect]
     Active Substance: RISPERIDONE
     Indication: PARANOIA
     Dosage: DOSAGE FORM: UNSPECIFIED
     Route: 065
  2. ALPRAZOLAM. [Suspect]
     Active Substance: ALPRAZOLAM
     Indication: PARANOIA
     Dosage: DOSAGE FORM: UNSPECIFIED
  3. PAROXETINE. [Suspect]
     Active Substance: PAROXETINE
     Indication: PARANOIA
     Dosage: DOSAGE FORM: UNSPECIFIED

REACTIONS (6)
  - Condition aggravated [Recovered/Resolved]
  - Treatment noncompliance [Recovered/Resolved]
  - Product dose omission [Recovered/Resolved]
  - Product use in unapproved indication [Unknown]
  - Psychotic disorder [Recovered/Resolved]
  - Off label use [Unknown]
